FAERS Safety Report 5196354-1 (Version None)
Quarter: 2006Q4

REPORT INFORMATION
  Report Type: 
  Country: None (occurrence: None)
  Receive Date: 20061222
  Receipt Date: 20061214
  Transmission Date: 20070319
  Serious: Yes (Other)
  Sender: FDA-Public Use
  Company Number: 2006128643

PATIENT
  Age: 72 Year
  Sex: Male

DRUGS (4)
  1. TORVAST (ATORVASTATIN) [Suspect]
     Indication: CORONARY ANGIOPLASTY
     Dosage: 20 MG (20 MG, 1 IN 1 D), ORAL
     Route: 048
     Dates: start: 20060801, end: 20060810
  2. PLAVIX [Suspect]
     Indication: CORONARY ANGIOPLASTY
     Dosage: 75 MG (75 MG, 1 IN 1 D), ORAL
     Route: 048
     Dates: start: 20060801, end: 20061008
  3. ASCRIPTIN (ACETYLSALICYLIC ACID, ALUMINUM HYDROXIDE, MAGNESIUM HYDROXI [Concomitant]
  4. RAMIPRIL [Concomitant]

REACTIONS (8)
  - DIARRHOEA [None]
  - EOSINOPHIL PERCENTAGE INCREASED [None]
  - NAUSEA [None]
  - OLIGURIA [None]
  - RASH [None]
  - VOMITING [None]
  - WHITE BLOOD CELL COUNT INCREASED [None]
  - WHITE BLOOD CELL DISORDER [None]
